FAERS Safety Report 15633348 (Version 1)
Quarter: 2018Q4

REPORT INFORMATION
  Report Type: Spontaneous
  Country: FR (occurrence: FR)
  Receive Date: 20181119
  Receipt Date: 20181119
  Transmission Date: 20190205
  Serious: Yes (Other)
  Sender: FDA-Public Use
  Company Number: FR-TEVA-2018-FR-975724

PATIENT
  Age: 66 Year
  Sex: Female

DRUGS (9)
  1. ACIDE FOLIQUE [Concomitant]
     Active Substance: FOLIC ACID
     Route: 065
  2. CRESTOR [Concomitant]
     Active Substance: ROSUVASTATIN CALCIUM
  3. DICHLORHYDRATE DE LEVOCETIRIZINE [Concomitant]
     Route: 065
  4. XARELTO [Concomitant]
     Active Substance: RIVAROXABAN
  5. CORDARONE [Concomitant]
     Active Substance: AMIODARONE HYDROCHLORIDE
  6. PACLITAXEL. [Suspect]
     Active Substance: PACLITAXEL
     Indication: NON-SMALL CELL LUNG CANCER
     Route: 042
     Dates: start: 20170808
  7. MONOPROST 50 MICROGRAMMES/ML, COLLYRE EN SOLUTION EN R?CIPIENT UNIDOSE [Concomitant]
     Active Substance: LATANOPROST
  8. BROMAZEPAM [Concomitant]
     Active Substance: BROMAZEPAM
     Route: 065
  9. SPIRONOLACTONE. [Concomitant]
     Active Substance: SPIRONOLACTONE
     Route: 065

REACTIONS (1)
  - Anaphylactoid reaction [Recovered/Resolved]

NARRATIVE: CASE EVENT DATE: 20170808
